FAERS Safety Report 21513254 (Version 5)
Quarter: 2022Q4

REPORT INFORMATION
  Report Type: Report from Study
  Country: TR (occurrence: None)
  Receive Date: 20221027
  Receipt Date: 20221223
  Transmission Date: 20230113
  Serious: Yes (Death, Hospitalization)
  Sender: FDA-Public Use
  Company Number: TR-ROCHE-3177897

PATIENT
  Age: 74 Year
  Sex: Male
  Weight: 94 kg

DRUGS (36)
  1. ATEZOLIZUMAB [Suspect]
     Active Substance: ATEZOLIZUMAB
     Indication: Small cell lung cancer extensive stage
     Dosage: START DATE OF MOST RECENT DOSE OF ATEZOLIZUMAB OF DOSE 1200 MG PRIOR TO AE :29/AUG/2022
     Route: 041
     Dates: start: 20220829
  2. CARBOPLATIN [Suspect]
     Active Substance: CARBOPLATIN
     Indication: Small cell lung cancer extensive stage
     Dosage: START DATE OF 337.2 MG OF CARBOPLATIN PRIOR TO AE: 29-AUG-2022
     Route: 042
     Dates: start: 20220829
  3. ETOPOSIDE [Suspect]
     Active Substance: ETOPOSIDE
     Indication: Small cell lung cancer extensive stage
     Dosage: ON DAYS 1, 2, AND 3 OF EACH 21-DAY CYCLE FOR 4 CYCLES?START DATE OF MOST RECENT DOSE OF ETOPOSIDE OF
     Route: 042
     Dates: start: 20220829
  4. TIOTROPIUM BROMIDE MONOHYDRATE [Concomitant]
     Active Substance: TIOTROPIUM BROMIDE MONOHYDRATE
     Indication: Chronic obstructive pulmonary disease
     Dates: start: 202207
  5. IPRATROPIUM BROMIDE [Concomitant]
     Active Substance: IPRATROPIUM BROMIDE
     Indication: Chronic obstructive pulmonary disease
     Route: 055
     Dates: start: 202207
  6. ALFUZOSIN HYDROCHLORIDE [Concomitant]
     Active Substance: ALFUZOSIN HYDROCHLORIDE
     Dates: start: 2012
  7. CANDESARTAN CILEXETIL\HYDROCHLOROTHIAZIDE [Concomitant]
     Active Substance: CANDESARTAN CILEXETIL\HYDROCHLOROTHIAZIDE
     Indication: Hypertension
     Dates: start: 2012
  8. ATORVASTATIN CALCIUM [Concomitant]
     Active Substance: ATORVASTATIN CALCIUM
     Indication: Blood cholesterol increased
     Dates: start: 2012
  9. SODIUM BICARBONATE [Concomitant]
     Active Substance: SODIUM BICARBONATE
     Dates: start: 2012
  10. FLUTICASONE FUROATE\SALMETEROL XINAFOATE [Concomitant]
     Active Substance: FLUTICASONE FUROATE\SALMETEROL XINAFOATE
     Indication: Chronic obstructive pulmonary disease
     Dates: start: 202207
  11. ALLOPURINOL [Concomitant]
     Active Substance: ALLOPURINOL
     Dates: start: 2007
  12. ENOXAPARIN SODIUM [Concomitant]
     Active Substance: ENOXAPARIN SODIUM
     Dates: start: 20220911, end: 20220912
  13. ENOXAPARIN SODIUM [Concomitant]
     Active Substance: ENOXAPARIN SODIUM
     Dates: start: 20220915, end: 20220915
  14. ENOXAPARIN SODIUM [Concomitant]
     Active Substance: ENOXAPARIN SODIUM
     Dates: start: 20220918, end: 20220919
  15. ENOXAPARIN SODIUM [Concomitant]
     Active Substance: ENOXAPARIN SODIUM
     Dates: start: 20220921, end: 20221001
  16. IOHEXOL [Concomitant]
     Active Substance: IOHEXOL
     Dates: start: 20220918, end: 20220918
  17. FENTANYL [Concomitant]
     Active Substance: FENTANYL
     Dates: start: 20220911, end: 20220911
  18. DIAZEPAM [Concomitant]
     Active Substance: DIAZEPAM
     Dates: start: 20220910, end: 20220910
  19. DIAZEPAM [Concomitant]
     Active Substance: DIAZEPAM
     Dates: start: 20220919, end: 20220919
  20. ACETAMINOPHEN [Concomitant]
     Active Substance: ACETAMINOPHEN
     Dates: start: 20220914, end: 20220915
  21. ACETAMINOPHEN [Concomitant]
     Active Substance: ACETAMINOPHEN
     Dates: start: 20220919, end: 20220919
  22. MEROPENEM [Concomitant]
     Active Substance: MEROPENEM
     Dates: start: 20220915, end: 20220928
  23. MEROPENEM [Concomitant]
     Active Substance: MEROPENEM
     Dates: start: 20220919, end: 20220919
  24. FOLIC ACID [Concomitant]
     Active Substance: FOLIC ACID
     Dates: start: 20220915, end: 20221001
  25. FOLIC ACID [Concomitant]
     Active Substance: FOLIC ACID
     Dates: start: 20220919, end: 20220919
  26. PANTOPRAZOLE [Concomitant]
     Active Substance: PANTOPRAZOLE
     Dates: start: 20220911, end: 20221001
  27. PANTOPRAZOLE [Concomitant]
     Active Substance: PANTOPRAZOLE
     Dates: start: 20220919, end: 20220919
  28. ONDANSETRON HYDROCHLORIDE [Concomitant]
     Active Substance: ONDANSETRON HYDROCHLORIDE
     Indication: Premedication
     Dates: start: 20220829, end: 20220829
  29. ONDANSETRON HYDROCHLORIDE [Concomitant]
     Active Substance: ONDANSETRON HYDROCHLORIDE
     Dates: start: 20220830, end: 20220830
  30. ONDANSETRON HYDROCHLORIDE [Concomitant]
     Active Substance: ONDANSETRON HYDROCHLORIDE
     Dates: start: 20220831, end: 20220831
  31. PHENIRAMINE [Concomitant]
     Active Substance: PHENIRAMINE
     Dates: start: 20220829, end: 20220829
  32. PHENIRAMINE [Concomitant]
     Active Substance: PHENIRAMINE
     Dates: start: 20220830, end: 20220830
  33. PHENIRAMINE [Concomitant]
     Active Substance: PHENIRAMINE
     Dates: start: 20220831, end: 20220831
  34. DEXAMETHASONE [Concomitant]
     Active Substance: DEXAMETHASONE
     Route: 042
     Dates: start: 20220829, end: 20220829
  35. DEXAMETHASONE [Concomitant]
     Active Substance: DEXAMETHASONE
     Route: 042
     Dates: start: 20220831, end: 20220831
  36. DEXAMETHASONE [Concomitant]
     Active Substance: DEXAMETHASONE
     Route: 042
     Dates: start: 20220830, end: 20220830

REACTIONS (2)
  - Pneumonia [Fatal]
  - Febrile neutropenia [Recovered/Resolved]

NARRATIVE: CASE EVENT DATE: 20220910
